FAERS Safety Report 8879042 (Version 1)
Quarter: 2012Q4

REPORT INFORMATION
  Report Type: Spontaneous
  Country: US (occurrence: None)
  Receive Date: 20121031
  Receipt Date: 20121031
  Transmission Date: 20130627
  Serious: Yes (Other)
  Sender: FDA-Public Use
  Company Number: None

PATIENT

DRUGS (1)
  1. DEPO-PROVERA [Suspect]
     Dates: start: 20111014, end: 20120716

REACTIONS (2)
  - Pregnancy test positive [None]
  - Pregnancy with injectable contraceptive [None]
